FAERS Safety Report 17834995 (Version 2)
Quarter: 2020Q3

REPORT INFORMATION
  Report Type: Report from Study
  Country: US (occurrence: US)
  Receive Date: 20200528
  Receipt Date: 20200706
  Transmission Date: 20201103
  Serious: Yes (Other)
  Sender: FDA-Public Use
  Company Number: US-SHIRE-US202017295

PATIENT
  Sex: Female
  Weight: 44 kg

DRUGS (2)
  1. GABAPENTIN. [Concomitant]
     Active Substance: GABAPENTIN
     Indication: PRODUCT USED FOR UNKNOWN INDICATION
  2. TEDUGLUTIDE [Suspect]
     Active Substance: TEDUGLUTIDE
     Indication: SHORT-BOWEL SYNDROME
     Dosage: UNK
     Route: 065
     Dates: start: 20180430

REACTIONS (5)
  - Anaemia [Not Recovered/Not Resolved]
  - Mental status changes [Recovered/Resolved]
  - Acute kidney injury [Not Recovered/Not Resolved]
  - Rectal adenoma [Not Recovered/Not Resolved]
  - Post procedural haematoma [Recovered/Resolved]

NARRATIVE: CASE EVENT DATE: 20191122
